APPROVED DRUG PRODUCT: DIDANOSINE
Active Ingredient: DIDANOSINE
Strength: 250MG
Dosage Form/Route: CAPSULE, DELAYED REL PELLETS;ORAL
Application: A077167 | Product #002
Applicant: BARR LABORATORIES INC
Approved: Dec 3, 2004 | RLD: No | RS: No | Type: DISCN